FAERS Safety Report 25955058 (Version 1)
Quarter: 2025Q4

REPORT INFORMATION
  Report Type: Spontaneous
  Country: EU (occurrence: EU)
  Receive Date: 20251024
  Receipt Date: 20251024
  Transmission Date: 20260117
  Serious: Yes (Other)
  Sender: BAXTER
  Company Number: None

PATIENT
  Age: 77 Year
  Sex: Male
  Weight: 60 kg

DRUGS (1)
  1. SCOPOLAMINE [Suspect]
     Active Substance: SCOPOLAMINE
     Indication: Salivary hypersecretion
     Dosage: 1 DOSAGE FORM, ONE PATCH BEHIND THE RIGHT EAR
     Route: 062
     Dates: start: 20251002, end: 20251004

REACTIONS (5)
  - Delirium [Recovered/Resolved]
  - Speech disorder [Recovered/Resolved]
  - Delusion [Recovered/Resolved]
  - Confusional state [Recovered/Resolved]
  - Restlessness [Recovered/Resolved]

NARRATIVE: CASE EVENT DATE: 20251003
